FAERS Safety Report 20993196 (Version 1)
Quarter: 2022Q2

REPORT INFORMATION
  Report Type: Spontaneous
  Country: US (occurrence: US)
  Receive Date: 20220622
  Receipt Date: 20220622
  Transmission Date: 20220720
  Serious: No
  Sender: FDA-Public Use
  Company Number: US-BRISTOL-MYERS SQUIBB COMPANY-2022-062093

PATIENT
  Age: 72 Year
  Sex: Male

DRUGS (1)
  1. REVLIMID [Suspect]
     Active Substance: LENALIDOMIDE
     Indication: Plasma cell myeloma
     Route: 048

REACTIONS (7)
  - Muscle spasms [Unknown]
  - Fatigue [Unknown]
  - Pruritus [Unknown]
  - Arthralgia [Unknown]
  - Coagulopathy [Unknown]
  - Hypertension [Unknown]
  - Electrolyte imbalance [Unknown]
